FAERS Safety Report 11749924 (Version 1)
Quarter: 2015Q4

REPORT INFORMATION
  Report Type: Spontaneous
  Country: US (occurrence: None)
  Receive Date: 20151118
  Receipt Date: 20151118
  Transmission Date: 20160304
  Serious: Yes (Other)
  Sender: FDA-Public Use
  Company Number: US-MDT-ADR-2015-02175

PATIENT

DRUGS (2)
  1. COMPOUNDED BACLOFEN INTRATHECAL 50 UG/ML [Suspect]
     Active Substance: BACLOFEN
     Dosage: 10 UG/DAY
  2. FENTANYL INTRATHECAL 10 MG/ML [Suspect]
     Active Substance: FENTANYL
     Dosage: 2 MG/DAY

REACTIONS (3)
  - Overdose [None]
  - Incorrect drug administration rate [None]
  - Device computer issue [None]
